FAERS Safety Report 8991159 (Version 1)
Quarter: 2012Q4

REPORT INFORMATION
  Report Type: Spontaneous
  Country: US (occurrence: None)
  Receive Date: 20121219
  Receipt Date: 20121219
  Transmission Date: 20130627
  Serious: Yes (Other)
  Sender: FDA-Public Use
  Company Number: ADR-2012-02251

PATIENT
  Sex: Female

DRUGS (1)
  1. LIORESAL [Suspect]
     Indication: SPASTICITY
     Route: 037

REACTIONS (4)
  - Incorrect dose administered [None]
  - Multiple sclerosis relapse [None]
  - Therapy cessation [None]
  - Diplegia [None]
